FAERS Safety Report 17538075 (Version 1)
Quarter: 2020Q1

REPORT INFORMATION
  Report Type: Spontaneous
  Country: FR (occurrence: FR)
  Receive Date: 20200313
  Receipt Date: 20200313
  Transmission Date: 20200409
  Serious: Yes (Life-Threatening)
  Sender: FDA-Public Use
  Company Number: FR-PFIZER INC-2020107518

PATIENT
  Age: 40 Year
  Sex: Female
  Weight: 56.5 kg

DRUGS (9)
  1. DOXYLAMINE SUCCINATE. [Suspect]
     Active Substance: DOXYLAMINE SUCCINATE
     Dosage: 150 MG, UNK
     Route: 048
     Dates: start: 20200120, end: 20200120
  2. ALPRAZOLAM. [Suspect]
     Active Substance: ALPRAZOLAM
     Dosage: 5 MG, UNK
     Route: 048
     Dates: start: 20200120, end: 20200120
  3. TRAMADOL HYDROCHLORIDE. [Suspect]
     Active Substance: TRAMADOL HYDROCHLORIDE
     Dosage: 1 G, UNK
     Route: 048
     Dates: start: 20200120, end: 20200120
  4. EBASTINE [Suspect]
     Active Substance: EBASTINE
     Dosage: 20 MG, UNK
     Route: 048
     Dates: start: 20200120, end: 20200120
  5. OXAZEPAM. [Suspect]
     Active Substance: OXAZEPAM
     Dosage: 150 MG, UNK
     Route: 048
     Dates: start: 20200120, end: 20200120
  6. CODEINE [Suspect]
     Active Substance: CODEINE
     Dosage: 475 MG, UNK
     Route: 048
     Dates: start: 20200120, end: 20200120
  7. PARACETAMOL [Suspect]
     Active Substance: ACETAMINOPHEN
     Dosage: 11.4 G, UNK
     Route: 048
     Dates: start: 20200120, end: 20200120
  8. NAPROXEN. [Suspect]
     Active Substance: NAPROXEN
     Dosage: 550 MG, UNK
     Route: 048
     Dates: start: 20200120, end: 20200120
  9. ESCITALOPRAM [Suspect]
     Active Substance: ESCITALOPRAM OXALATE
     Dosage: 280 MG, UNK
     Route: 048
     Dates: start: 20200120, end: 20200120

REACTIONS (4)
  - Hepatic failure [Recovering/Resolving]
  - Mixed liver injury [Recovering/Resolving]
  - Toxicity to various agents [Unknown]
  - Coma [Recovered/Resolved]

NARRATIVE: CASE EVENT DATE: 20200120
